FAERS Safety Report 5407824-2 (Version None)
Quarter: 2007Q3

REPORT INFORMATION
  Report Type: 
  Country: None (occurrence: None)
  Receive Date: 20070803
  Receipt Date: 20070725
  Transmission Date: 20080115
  Serious: Yes (Hospitalization, Disabling)
  Sender: FDA-Public Use
  Company Number: 236197K07USA

PATIENT
  Age: 33 Year
  Sex: Male
  Weight: 77.1115 kg

DRUGS (4)
  1. REBIF (INTERFERSON BETA) [Suspect]
     Indication: MULTIPLE SCLEROSIS
     Dosage: 44 MCG, 3 IN 1 WEEKS, SUBCUTANEOUS
     Route: 058
     Dates: start: 20040721
  2. SOLU-MEDROL [Suspect]
     Dates: start: 20070501
  3. CYMBALTA [Concomitant]
  4. REQUIP [Concomitant]

REACTIONS (2)
  - DEEP VEIN THROMBOSIS [None]
  - MULTIPLE SCLEROSIS RELAPSE [None]
